FAERS Safety Report 6643796-0 (Version None)
Quarter: 2010Q1

REPORT INFORMATION
  Report Type: 
  Country: None (occurrence: None)
  Receive Date: 20100322
  Receipt Date: 20100308
  Transmission Date: 20100710
  Serious: Yes (Hospitalization, Other)
  Sender: FDA-Public Use
  Company Number: US-ELI_LILLY_AND_COMPANY-US201003003653

PATIENT
  Sex: Female

DRUGS (6)
  1. FORTEO [Suspect]
     Indication: OSTEOPOROSIS
     Dosage: 20 UG, UNKNOWN
     Dates: start: 20090225
  2. METHOTREXATE [Concomitant]
     Dosage: UNK, UNKNOWN
  3. SALSALATE [Concomitant]
     Dosage: UNK, UNKNOWN
  4. BABY ASPIRIN [Concomitant]
     Dosage: UNK, UNKNOWN
  5. CITRUCEL [Concomitant]
     Dosage: 4 D/F, DAILY (1/D)
  6. VITAMIN D [Concomitant]
     Dosage: UNK, UNKNOWN

REACTIONS (5)
  - BACK PAIN [None]
  - BALANCE DISORDER [None]
  - FALL [None]
  - GAIT DISTURBANCE [None]
  - LOWER LIMB FRACTURE [None]
